FAERS Safety Report 9675314 (Version 1)
Quarter: 2013Q4

REPORT INFORMATION
  Report Type: Spontaneous
  Country: US (occurrence: US)
  Receive Date: 20131107
  Receipt Date: 20131107
  Transmission Date: 20140711
  Serious: No
  Sender: FDA-Public Use
  Company Number: US-PFIZER INC-2013314196

PATIENT
  Age: 68 Year
  Sex: Female
  Weight: 62.59 kg

DRUGS (5)
  1. SINEQUAN [Suspect]
     Indication: DEPRESSION
     Dosage: 75 MG, DAILY AT NIGHT
     Dates: start: 2000, end: 201310
  2. ESTRADIOL [Concomitant]
     Dosage: 1.5 MG, DAILY
  3. ARMOUR THYROID [Concomitant]
     Dosage: 90 MG, DAILY
  4. RESTORIL [Concomitant]
     Indication: SLEEP DISORDER
     Dosage: 30 MG, UNK
  5. HALCION [Concomitant]
     Indication: SLEEP DISORDER
     Dosage: UNK

REACTIONS (9)
  - Drug withdrawal syndrome [Unknown]
  - Nausea [Unknown]
  - Nasopharyngitis [Unknown]
  - Influenza [Unknown]
  - Asthenia [Unknown]
  - Decreased appetite [Unknown]
  - Pruritus generalised [Unknown]
  - Diarrhoea [Unknown]
  - Dysstasia [Unknown]
